FAERS Safety Report 15698578 (Version 2)
Quarter: 2019Q1

REPORT INFORMATION
  Report Type: Spontaneous
  Country: US (occurrence: US)
  Receive Date: 20181207
  Receipt Date: 20190125
  Transmission Date: 20190417
  Serious: Yes (Hospitalization)
  Sender: FDA-Public Use
  Company Number: US-TEVA-2018-US-983146

PATIENT
  Sex: Male

DRUGS (1)
  1. SYNRIBO [Suspect]
     Active Substance: OMACETAXINE MEPESUCCINATE
     Indication: CHRONIC MYELOID LEUKAEMIA
     Dosage: DOSE: 2.925 MG/0.84 ML, BID *14 DAYS
     Route: 065
     Dates: start: 20181120

REACTIONS (4)
  - Cellulitis [Unknown]
  - Expired product administered [Unknown]
  - Pain [Unknown]
  - Injection site erythema [Unknown]
